FAERS Safety Report 14557888 (Version 4)
Quarter: 2018Q2

REPORT INFORMATION
  Report Type: Report from Study
  Country: CA (occurrence: CA)
  Receive Date: 20180221
  Receipt Date: 20180504
  Transmission Date: 20180711
  Serious: Yes (Hospitalization, Other)
  Sender: FDA-Public Use
  Company Number: CA-JNJFOC-20180217851

PATIENT
  Age: 47 Year
  Sex: Female
  Weight: 57.61 kg

DRUGS (4)
  1. REMICADE [Suspect]
     Active Substance: INFLIXIMAB
     Indication: COLITIS ULCERATIVE
     Route: 042
     Dates: start: 20171115
  2. REMICADE [Suspect]
     Active Substance: INFLIXIMAB
     Indication: COLITIS ULCERATIVE
     Route: 042
     Dates: start: 20180212
  3. REMICADE [Suspect]
     Active Substance: INFLIXIMAB
     Indication: COLITIS ULCERATIVE
     Route: 042
  4. REMICADE [Suspect]
     Active Substance: INFLIXIMAB
     Indication: COLITIS ULCERATIVE
     Route: 042
     Dates: start: 20171115

REACTIONS (12)
  - Product use issue [Unknown]
  - Infusion related reaction [Unknown]
  - Body temperature increased [Recovering/Resolving]
  - Off label use [Unknown]
  - Drug level below therapeutic [Unknown]
  - Heart rate increased [Unknown]
  - Clostridium difficile infection [Not Recovered/Not Resolved]
  - Therapeutic response decreased [Unknown]
  - Cytomegalovirus infection [Recovered/Resolved]
  - Colitis ulcerative [Recovering/Resolving]
  - General physical health deterioration [Recovering/Resolving]
  - Colectomy [Unknown]

NARRATIVE: CASE EVENT DATE: 2018
